FAERS Safety Report 5805129-9 (Version None)
Quarter: 2008Q3

REPORT INFORMATION
  Report Type: 
  Country: None (occurrence: None)
  Receive Date: 20080709
  Receipt Date: 20080701
  Transmission Date: 20090109
  Serious: Yes (Other)
  Sender: FDA-Public Use
  Company Number: US-GILEAD-2008-0017118

PATIENT
  Age: 24 Year
  Sex: Female

DRUGS (5)
  1. TRUVADA [Suspect]
     Route: 048
     Dates: start: 20070517
  2. ENFUVIRTIDE [Concomitant]
     Route: 048
  3. RALTEGRAVIR [Concomitant]
     Route: 048
     Dates: start: 20070517, end: 20070928
  4. DARUNAVIR [Concomitant]
     Route: 048
     Dates: start: 20070517
  5. RITONAVIR [Concomitant]
     Route: 048
     Dates: start: 20070517

REACTIONS (3)
  - MULTIPLE-DRUG RESISTANCE [None]
  - PREGNANCY [None]
  - VIRAL LOAD INCREASED [None]
